FAERS Safety Report 18681286 (Version 1)
Quarter: 2020Q4

REPORT INFORMATION
  Report Type: Spontaneous
  Country: US (occurrence: US)
  Receive Date: 20201229
  Receipt Date: 20201229
  Transmission Date: 20210114
  Serious: Yes (Hospitalization)
  Sender: FDA-Public Use
  Company Number: None

PATIENT
  Age: 70 Year
  Sex: Male
  Weight: 88.65 kg

DRUGS (1)
  1. BAMLANIVIMAB. [Suspect]
     Active Substance: BAMLANIVIMAB
     Indication: COVID-19
     Dosage: ?          OTHER FREQUENCY:ONE DOSE;?
     Route: 040
     Dates: start: 20201226, end: 20201226

REACTIONS (3)
  - Cardiac failure acute [None]
  - Acute kidney injury [None]
  - Lung infiltration [None]

NARRATIVE: CASE EVENT DATE: 20201228
